FAERS Safety Report 18585450 (Version 3)
Quarter: 2020Q4

REPORT INFORMATION
  Report Type: Spontaneous
  Country: US (occurrence: US)
  Receive Date: 20201207
  Receipt Date: 20201228
  Transmission Date: 20210114
  Serious: Yes (Other)
  Sender: FDA-Public Use
  Company Number: US-PFIZER INC-2020445934

PATIENT
  Age: 52 Year
  Sex: Female

DRUGS (1)
  1. LYRICA [Suspect]
     Active Substance: PREGABALIN
     Dosage: 100 MG, 2X/DAY (2 (TWO) CAPSULE BY MOUTH TWO TIMES DAILY)
     Route: 048

REACTIONS (3)
  - Diabetes mellitus [Unknown]
  - Intentional product use issue [Unknown]
  - Choking [Unknown]
